FAERS Safety Report 7333006-3 (Version None)
Quarter: 2011Q1

REPORT INFORMATION
  Report Type: 
  Country: None (occurrence: None)
  Receive Date: 20110304
  Receipt Date: 20110302
  Transmission Date: 20110831
  Serious: No
  Sender: FDA-Public Use
  Company Number: US-TEVA-268859USA

PATIENT
  Sex: Female
  Weight: 72.64 kg

DRUGS (2)
  1. ANTIBIOTIC [Concomitant]
     Indication: ACNE
     Dates: end: 20110220
  2. PLAN B ONE-STEP [Suspect]
     Indication: POST COITAL CONTRACEPTION
     Route: 048
     Dates: start: 20110221, end: 20110221

REACTIONS (1)
  - CONTUSION [None]
